FAERS Safety Report 6267133-9 (Version None)
Quarter: 2009Q3

REPORT INFORMATION
  Report Type: 
  Country: None (occurrence: None)
  Receive Date: 20090714
  Receipt Date: 20090703
  Transmission Date: 20100115
  Serious: Yes (Other)
  Sender: FDA-Public Use
  Company Number: BR-PFIZER INC-2009191313

PATIENT

DRUGS (1)
  1. CELEBRA [Suspect]
     Indication: MYALGIA

REACTIONS (2)
  - EYELID FUNCTION DISORDER [None]
  - SWELLING FACE [None]
